FAERS Safety Report 6177639-9 (Version None)
Quarter: 2009Q2

REPORT INFORMATION
  Report Type: 
  Country: None (occurrence: None)
  Receive Date: 20090504
  Receipt Date: 20090421
  Transmission Date: 20091009
  Serious: Yes (Other)
  Sender: FDA-Public Use
  Company Number: US-CELGENEUS-163-21880-09042014

PATIENT
  Sex: Male

DRUGS (2)
  1. REVLIMID [Suspect]
     Route: 048
     Dates: start: 20080801
  2. REVLIMID [Suspect]
     Route: 048
     Dates: start: 20080501, end: 20080101

REACTIONS (3)
  - FATIGUE [None]
  - MENTAL IMPAIRMENT [None]
  - VISUAL IMPAIRMENT [None]
